FAERS Safety Report 6187484-6 (Version None)
Quarter: 2009Q2

REPORT INFORMATION
  Report Type: 
  Country: None (occurrence: None)
  Receive Date: 20090508
  Receipt Date: 20090422
  Transmission Date: 20091009
  Serious: Yes (Other)
  Sender: FDA-Public Use
  Company Number: 000698

PATIENT
  Sex: Female

DRUGS (6)
  1. OMEPRAZOLE [Suspect]
     Indication: HIATUS HERNIA
     Dosage: 20 MG, DAILY, ORAL
     Route: 048
  2. SERETIDE /01434201/ (SERETIDE) (NOT SPECIFIED) [Suspect]
     Indication: ASTHMA
     Dosage: 1 DF QID, 2 PUFFS TWICE DAILY, RESPIRATORY INHALATION
     Route: 055
  3. VENTOLIN [Suspect]
     Indication: ASTHMA
     Dosage: RESPIRATORY INHALATION
     Route: 055
  4. BENDROFLUMETHIAZIDE (BENDROFLUMETHIAZIDE) [Suspect]
     Indication: BLOOD PRESSURE
     Dosage: 2.5 MG, DAILY, ORAL
     Route: 048
  5. CO-CODAMOL (CI-CODAMOL) [Suspect]
  6. GAVISCON /00237601/ (GAVISCON) [Suspect]

REACTIONS (1)
  - BREAST CANCER FEMALE [None]
